FAERS Safety Report 4638468-8 (Version None)
Quarter: 2005Q2

REPORT INFORMATION
  Report Type: 
  Country: None (occurrence: None)
  Receive Date: 20050418
  Receipt Date: 20050330
  Transmission Date: 20051028
  Serious: Yes (Hospitalization)
  Sender: FDA-Public Use
  Company Number: CA-2004-026155

PATIENT
  Age: 54 Year
  Sex: Female

DRUGS (13)
  1. BETASERON [Suspect]
     Indication: RELAPSING-REMITTING MULTIPLE SCLEROSIS
     Dosage: 4 MIU, EVERY 2D, SUBCUTANEOUS
     Route: 058
     Dates: start: 19890502
  2. ANTIBIOTICS [Concomitant]
  3. DILAUDID [Concomitant]
  4. GRAVOL TAB [Concomitant]
  5. MACRODANTIN [Concomitant]
  6. AMITRIPTYLINE HCL [Concomitant]
  7. MISOPROSTOL [Concomitant]
  8. LISINOPRIL [Concomitant]
  9. TEMAZEPAM [Concomitant]
  10. PAXIL [Concomitant]
  11. DULCOLAX [Concomitant]
  12. METFORMIN HCL [Concomitant]
  13. ETIDRONATE DISODIUM [Concomitant]

REACTIONS (6)
  - ASTHENIA [None]
  - CYSTITIS [None]
  - ILEOSTOMY [None]
  - KIDNEY INFECTION [None]
  - POST PROCEDURAL COMPLICATION [None]
  - STAPHYLOCOCCAL INFECTION [None]
